FAERS Safety Report 4511295-8 (Version None)
Quarter: 2004Q4

REPORT INFORMATION
  Report Type: 
  Country: None (occurrence: None)
  Receive Date: 20041122
  Receipt Date: 20041108
  Transmission Date: 20050328
  Serious: No
  Sender: FDA-Public Use
  Company Number: 12759304

PATIENT
  Age: 36 Year
  Sex: Male

DRUGS (1)
  1. NALOREX          (NALTREXONE HCL) [Suspect]
     Indication: DRUG DEPENDENCE
     Dosage: 50 MILLIGRAM 1 DAY ORAL
     Route: 048
     Dates: start: 20040401, end: 20040801

REACTIONS (4)
  - ALANINE AMINOTRANSFERASE INCREASED [None]
  - GAMMA-GLUTAMYLTRANSFERASE INCREASED [None]
  - GLOBULINS INCREASED [None]
  - PROTEIN TOTAL INCREASED [None]
